FAERS Safety Report 15394423 (Version 1)
Quarter: 2018Q3

REPORT INFORMATION
  Report Type: Other
  Country: FR (occurrence: FR)
  Receive Date: 20180918
  Receipt Date: 20180918
  Transmission Date: 20181010
  Serious: Yes (Hospitalization)
  Sender: FDA-Public Use
  Company Number: FR-DENTSPLY-2018SCDP000421

PATIENT
  Age: 29 Year
  Sex: Female
  Weight: 72 kg

DRUGS (1)
  1. LIDOCAINE HYDROCHLORIDE AND EPINEPHRINE BITARTRATE [Suspect]
     Active Substance: EPINEPHRINE BITARTRATE\LIDOCAINE HYDROCHLORIDE
     Indication: EPIDURAL ANAESTHESIA
     Dosage: 1 DF, UNK
     Route: 008
     Dates: start: 20180719, end: 20180719

REACTIONS (1)
  - Drug ineffective [Recovered/Resolved]

NARRATIVE: CASE EVENT DATE: 20180719
